FAERS Safety Report 16783334 (Version 4)
Quarter: 2023Q4

REPORT INFORMATION
  Report Type: Spontaneous
  Country: CA (occurrence: CA)
  Receive Date: 20190907
  Receipt Date: 20231229
  Transmission Date: 20240110
  Serious: Yes (Other)
  Sender: FDA-Public Use
  Company Number: CA-AUROBINDO-AUR-APL-2019-058565

PATIENT
  Age: 85 Year
  Sex: Male

DRUGS (7)
  1. AMLODIPINE [Suspect]
     Active Substance: AMLODIPINE BESYLATE
     Indication: Product used for unknown indication
     Dosage: ONCE A DAY
     Route: 065
  2. RAMIPRIL [Suspect]
     Active Substance: RAMIPRIL
     Indication: Product used for unknown indication
     Dosage: ONCE A DAY
     Route: 065
  3. RAMIPRIL [Suspect]
     Active Substance: RAMIPRIL
     Dosage: 5 MILLIGRAM, ONCE A DAY
     Route: 048
  4. RAMIPRIL [Suspect]
     Active Substance: RAMIPRIL
     Dosage: 15 MILLIGRAM, ONCE A DAY
     Route: 048
  5. SANDOSTATIN LAR DEPOT [Suspect]
     Active Substance: OCTREOTIDE ACETATE
     Indication: Carcinoid syndrome
     Dosage: 30.0 MILLIGRAM, EVERY MONTH
     Route: 030
  6. SANDOSTATIN LAR DEPOT [Suspect]
     Active Substance: OCTREOTIDE ACETATE
     Indication: Carcinoid syndrome
     Dosage: 10 MILLIGRAM
     Route: 030
  7. ATORVASTATIN [Concomitant]
     Active Substance: ATORVASTATIN
     Indication: Product used for unknown indication
     Dosage: ONCE A DAY
     Route: 065

REACTIONS (18)
  - Blood pressure systolic increased [Unknown]
  - Gait disturbance [Recovering/Resolving]
  - Joint swelling [Recovering/Resolving]
  - Rheumatoid arthritis [Recovering/Resolving]
  - Arthralgia [Recovering/Resolving]
  - Blood pressure diastolic decreased [Recovering/Resolving]
  - Back pain [Recovering/Resolving]
  - Blood pressure decreased [Recovering/Resolving]
  - Blood pressure increased [Recovering/Resolving]
  - COVID-19 [Recovering/Resolving]
  - Fatigue [Recovering/Resolving]
  - Gout [Recovering/Resolving]
  - Heart rate decreased [Recovering/Resolving]
  - Pain in extremity [Recovering/Resolving]
  - Skin exfoliation [Recovering/Resolving]
  - Skin laceration [Recovering/Resolving]
  - Product dispensing error [Recovering/Resolving]
  - Incorrect dosage administered [Recovering/Resolving]
